FAERS Safety Report 4581925-3 (Version None)
Quarter: 2005Q1

REPORT INFORMATION
  Report Type: 
  Country: None (occurrence: None)
  Receive Date: 20050214
  Receipt Date: 20040407
  Transmission Date: 20050727
  Serious: No
  Sender: FDA-Public Use
  Company Number: US-GLAXOSMITHKLINE-A0506219A

PATIENT
  Age: 42 Year
  Sex: Female

DRUGS (3)
  1. LAMICTAL [Suspect]
     Indication: BIPOLAR DISORDER
     Dosage: 50MG TWICE PER DAY
     Route: 048
     Dates: start: 20040301
  2. WELLBUTRIN XL [Suspect]
     Route: 048
     Dates: start: 20040401
  3. TRILEPTAL [Concomitant]

REACTIONS (2)
  - PRURITUS [None]
  - RASH PAPULAR [None]
